FAERS Safety Report 9258997 (Version 1)
Quarter: 2013Q2

REPORT INFORMATION
  Report Type: Spontaneous
  Country: BR (occurrence: BR)
  Receive Date: 20130426
  Receipt Date: 20130426
  Transmission Date: 20140414
  Serious: Yes (Hospitalization)
  Sender: FDA-Public Use
  Company Number: BR-ASTRAZENECA-2013SE26504

PATIENT
  Age: 754 Month
  Sex: Male
  Weight: 78 kg

DRUGS (3)
  1. CRESTOR [Suspect]
     Indication: CARDIOVASCULAR EVENT PROPHYLAXIS
     Route: 048
     Dates: start: 201302
  2. DIOVAN [Concomitant]
     Indication: HYPERTENSION
     Dates: start: 201302
  3. ADALAT [Concomitant]
     Indication: HYPERTENSION
     Dates: start: 201302

REACTIONS (2)
  - Chest discomfort [Recovering/Resolving]
  - Coronary artery occlusion [Recovered/Resolved]
